FAERS Safety Report 7669310-9 (Version None)
Quarter: 2011Q3

REPORT INFORMATION
  Report Type: 
  Country: None (occurrence: None)
  Receive Date: 20110808
  Receipt Date: 20110803
  Transmission Date: 20111222
  Serious: Yes (Other)
  Sender: FDA-Public Use
  Company Number: PHEH2011US00683

PATIENT
  Age: 82 Year
  Sex: Female
  Weight: 65.306 kg

DRUGS (5)
  1. NEXIUM [Concomitant]
     Dosage: 40 MG, QD
  2. LEXAPRO [Concomitant]
     Dosage: 10 MG, QD
  3. LORAZEPAM [Concomitant]
     Dosage: 1 MG, UNK
  4. ZYPREXA [Concomitant]
     Dosage: 2.5 MG, UNK
  5. RECLAST [Suspect]
     Indication: OSTEOPOROSIS
     Dosage: 5 MG/YEAR
     Route: 042
     Dates: start: 20100115, end: 20100115

REACTIONS (3)
  - ANXIETY [None]
  - DELUSION [None]
  - HYPERTENSION [None]
